FAERS Safety Report 7490223-X (Version None)
Quarter: 2011Q2

REPORT INFORMATION
  Report Type: 
  Country: None (occurrence: None)
  Receive Date: 20110519
  Receipt Date: 20110505
  Transmission Date: 20111010
  Serious: No
  Sender: FDA-Public Use
  Company Number: US-TYCO HEALTHCARE/MALLINCKRODT-T201100924

PATIENT
  Sex: Female

DRUGS (5)
  1. PROZAC                             /00724401/ [Concomitant]
  2. XANAX [Concomitant]
  3. PERCOCET [Concomitant]
     Indication: BREAKTHROUGH PAIN
     Dosage: 10/325 MG QID
     Route: 048
  4. FENTANYL-100 [Suspect]
     Indication: FIBROMYALGIA
     Dosage: 100 UG/HR Q 48 HOURS
     Route: 062
     Dates: start: 20110329, end: 20110406
  5. LYRICA [Concomitant]

REACTIONS (3)
  - ANXIETY [None]
  - FEELING ABNORMAL [None]
  - DRUG INEFFECTIVE [None]
